FAERS Safety Report 11248588 (Version 1)
Quarter: 2015Q3

REPORT INFORMATION
  Report Type: Report from Study
  Country: US (occurrence: US)
  Receive Date: 20150708
  Receipt Date: 20150708
  Transmission Date: 20151125
  Serious: Yes (Other)
  Sender: FDA-Public Use
  Company Number: US-ALXN-A201502485AA

PATIENT

DRUGS (1)
  1. SOLIRIS [Suspect]
     Active Substance: ECULIZUMAB
     Indication: PRODUCT USED FOR UNKNOWN INDICATION
     Dosage: UNK
     Route: 042

REACTIONS (7)
  - Serum ferritin increased [Not Recovered/Not Resolved]
  - Arthralgia [Unknown]
  - Jaundice [Unknown]
  - Haematocrit abnormal [Unknown]
  - Fatigue [Unknown]
  - Extravascular haemolysis [Unknown]
  - Haemoglobin abnormal [Unknown]
